FAERS Safety Report 7973423-1 (Version None)
Quarter: 2011Q4

REPORT INFORMATION
  Report Type: 
  Country: None (occurrence: None)
  Receive Date: 20111213
  Receipt Date: 20111201
  Transmission Date: 20120403
  Serious: Yes (Other)
  Sender: FDA-Public Use
  Company Number: US-ELI_LILLY_AND_COMPANY-US201112001385

PATIENT
  Sex: Female

DRUGS (1)
  1. FORTEO [Suspect]
     Indication: OSTEOPOROSIS
     Route: 065

REACTIONS (6)
  - SPINAL FRACTURE [None]
  - COUGH [None]
  - IMPAIRED HEALING [None]
  - PAIN [None]
  - FATIGUE [None]
  - DEVICE DISLOCATION [None]
